FAERS Safety Report 9304922 (Version 1)
Quarter: 2013Q2

REPORT INFORMATION
  Report Type: Spontaneous
  Country: US (occurrence: None)
  Receive Date: 20130521
  Receipt Date: 20130521
  Transmission Date: 20140414
  Serious: Yes (Other)
  Sender: FDA-Public Use
  Company Number: 2013/105

PATIENT
  Age: 62 Year
  Sex: Male

DRUGS (9)
  1. AMLODIPINE (NO PREF. NAME) 5 MG [Suspect]
  2. ISOSORBIDE DINITRATE (NO PREF. NAME) [Concomitant]
  3. LISINOPRIL (NO PREF. NAME) [Concomitant]
  4. METOPROLOL (NO PREF. NAME) [Concomitant]
  5. ASPIRIN (NO PREF. NAME) [Concomitant]
  6. CLOPIDROGEL (NO PREF. NAME) [Concomitant]
  7. FINOFIBRATE (NO PREF. NAME) [Concomitant]
  8. SIMVASTATIN (NO PREF. NAME) [Concomitant]
  9. RANITIDINE (NO PREF. NAME) [Concomitant]

REACTIONS (1)
  - Cutaneous lupus erythematosus [None]
